FAERS Safety Report 9772907 (Version 2)
Quarter: 2013Q4

REPORT INFORMATION
  Report Type: Spontaneous
  Country: FR (occurrence: FR)
  Receive Date: 20131219
  Receipt Date: 20131219
  Transmission Date: 20140711
  Serious: Yes (Other)
  Sender: FDA-Public Use
  Company Number: FR-ABBVIE-13P-056-1173627-00

PATIENT
  Age: 40 Year
  Sex: Female
  Weight: 75 kg

DRUGS (4)
  1. HUMIRA [Suspect]
     Indication: PSORIATIC ARTHROPATHY
     Dates: start: 201309, end: 201309
  2. HUMIRA [Suspect]
     Indication: COLITIS ULCERATIVE
     Dates: start: 201309, end: 201311
  3. IMETH [Concomitant]
     Indication: PSORIATIC ARTHROPATHY
     Route: 048
     Dates: start: 2009
  4. LEVOTHYROX [Concomitant]
     Indication: PRODUCT USED FOR UNKNOWN INDICATION
     Dates: start: 1990

REACTIONS (3)
  - Weight increased [Recovering/Resolving]
  - Diabetes mellitus [Recovering/Resolving]
  - Hepatocellular injury [Recovering/Resolving]
